FAERS Safety Report 23996450 (Version 1)
Quarter: 2024Q2

REPORT INFORMATION
  Report Type: Spontaneous
  Country: US (occurrence: US)
  Receive Date: 20240620
  Receipt Date: 20240620
  Transmission Date: 20240716
  Serious: Yes (Other)
  Sender: FDA-Public Use
  Company Number: US-SMPA-2024SPA000050

PATIENT

DRUGS (15)
  1. APTIOM [Suspect]
     Active Substance: ESLICARBAZEPINE ACETATE
     Indication: Seizure
     Dosage: 1200 MG, QD (AT NIGHT IN THE FORM OF 2-600MG TABLETS)
     Route: 048
  2. TYLENOL WITH CODEINE [Concomitant]
     Active Substance: ACETAMINOPHEN\CODEINE PHOSPHATE
     Dosage: UNK, (TAKE 1 IN THE MORNING AND 1 AT NIGHT, TAKES IN THE MORNING ONLY IF NEEDED)
     Route: 065
  3. PROPRANOLOL [Concomitant]
     Active Substance: PROPRANOLOL HYDROCHLORIDE
     Indication: Familial tremor
     Dosage: 80 MG, BID
     Route: 065
     Dates: start: 2002
  4. PROMETHAZINE [Concomitant]
     Active Substance: PROMETHAZINE HYDROCHLORIDE
     Indication: Gastrointestinal disorder
     Dosage: 25 MG, AS NECESSARY
     Route: 065
  5. CELEBREX [Concomitant]
     Active Substance: CELECOXIB
     Dosage: 100 MG, QD (IN THE MORNING)
     Route: 065
  6. SUMATRIPTAN [Concomitant]
     Active Substance: SUMATRIPTAN
     Indication: Antidepressant therapy
     Dosage: 100 MG, QD (IN THE MORNING)
     Route: 065
  7. SERTRALINE HYDROCHLORIDE [Concomitant]
     Active Substance: SERTRALINE HYDROCHLORIDE
     Indication: Major depression
     Dosage: 100 MG, QD (IN THE MORNING)
     Route: 065
  8. VITAMIN D3 [Concomitant]
     Active Substance: CHOLECALCIFEROL
     Indication: Vitamin supplementation
     Dosage: UNK, (ONCE A WEEK ON SATURDAYS)
     Route: 065
  9. Woman^s All Around Multivitamin [Concomitant]
     Dosage: UNK, DAILY
     Route: 065
  10. Cranberry pills [Concomitant]
     Indication: Kidney infection
     Dosage: UNK, (TAKEN DAILY IN THE MORNING)
     Route: 065
  11. PREDNISONE [Concomitant]
     Active Substance: PREDNISONE
     Indication: Systemic lupus erythematosus
     Dosage: 5 MG, 1-2 TABLETS DAILY IN THE MORNING
     Route: 048
  12. Wellbutrin HCL XL [Concomitant]
     Dosage: UNK, (1-150MG TABLET EVERY DAY)
     Route: 048
  13. CLONAZEPAM [Concomitant]
     Active Substance: CLONAZEPAM
     Indication: Stress
     Dosage: UNK, (2 MG EVERY DAY)
     Route: 065
  14. SYNTHROID [Concomitant]
     Active Substance: LEVOTHYROXINE SODIUM
     Dosage: 100 ?G (DAILY IN THE MORNING)
     Route: 065
  15. GABAPENTIN [Concomitant]
     Active Substance: GABAPENTIN
     Dosage: 300 MG, QD (AT NIGHT)
     Route: 065

REACTIONS (12)
  - Kidney infection [Not Recovered/Not Resolved]
  - Autoimmune thyroiditis [Not Recovered/Not Resolved]
  - Systemic lupus erythematosus [Not Recovered/Not Resolved]
  - Seizure [Not Recovered/Not Resolved]
  - Cystitis [Not Recovered/Not Resolved]
  - Abdominal discomfort [Not Recovered/Not Resolved]
  - Depressed mood [Not Recovered/Not Resolved]
  - Migraine [Not Recovered/Not Resolved]
  - Cholecystectomy [Not Recovered/Not Resolved]
  - Speech disorder [Not Recovered/Not Resolved]
  - Memory impairment [Not Recovered/Not Resolved]
  - Tremor [Not Recovered/Not Resolved]
